FAERS Safety Report 4705474-4 (Version None)
Quarter: 2005Q2

REPORT INFORMATION
  Report Type: 
  Country: None (occurrence: None)
  Receive Date: 20050629
  Receipt Date: 20050203
  Transmission Date: 20051028
  Serious: Yes (Hospitalization)
  Sender: FDA-Public Use
  Company Number: 200510365US

PATIENT
  Age: 34 Year
  Sex: Male
  Weight: 93 kg

DRUGS (9)
  1. BECLOMETHASONE DIPROPIONATE [Suspect]
     Indication: ASTHMA
     Dosage: 640 UG/DAY INH
     Dates: start: 20040608
  2. BECLOMETHASONE DIPROPIONATE [Suspect]
     Indication: ASTHMA
  3. BECLOMETHASONE DIPROPIONATE [Suspect]
     Indication: ASTHMA
  4. BECLOMETHASONE DIPROPIONATE [Suspect]
     Indication: ASTHMA
  5. PRILOSEC [Concomitant]
  6. PROVENTIL [Concomitant]
  7. ACCOLATE [Concomitant]
  8. CLARITIN [Concomitant]
  9. IBUPROFEN [Concomitant]

REACTIONS (15)
  - ARTHRALGIA [None]
  - ASTHMA [None]
  - BACTERIA SPUTUM IDENTIFIED [None]
  - BACTERIAL INFECTION [None]
  - BLOOD GLUCOSE INCREASED [None]
  - BLOOD PH INCREASED [None]
  - CONDITION AGGRAVATED [None]
  - DYSPNOEA EXERTIONAL [None]
  - HAEMATOCRIT DECREASED [None]
  - LYMPHOCYTE COUNT DECREASED [None]
  - LYMPHOCYTE PERCENTAGE DECREASED [None]
  - MYALGIA [None]
  - NEUTROPHIL PERCENTAGE DECREASED [None]
  - PNEUMONIA [None]
  - RED BLOOD CELL COUNT DECREASED [None]
